APPROVED DRUG PRODUCT: IRBESARTAN AND HYDROCHLOROTHIAZIDE
Active Ingredient: HYDROCHLOROTHIAZIDE; IRBESARTAN
Strength: 25MG;300MG
Dosage Form/Route: TABLET;ORAL
Application: A077969 | Product #003
Applicant: PHARMOBEDIENT CONSULTING LLC
Approved: Jul 20, 2016 | RLD: No | RS: No | Type: DISCN